FAERS Safety Report 9884204 (Version 1)
Quarter: 2014Q1

REPORT INFORMATION
  Report Type: Spontaneous
  Country: SG (occurrence: SG)
  Receive Date: 20140210
  Receipt Date: 20140210
  Transmission Date: 20141002
  Serious: Yes (Death, Other)
  Sender: FDA-Public Use
  Company Number: SG-ELI_LILLY_AND_COMPANY-SG201402001663

PATIENT
  Age: 57 Year
  Sex: Male

DRUGS (2)
  1. GEMCITABINE HYDROCHLORIDE [Suspect]
     Indication: NASOPHARYNGEAL CANCER
     Dosage: 1000 UNK, UNK
     Route: 065
  2. CARBOPLATIN [Suspect]
     Indication: NASOPHARYNGEAL CANCER
     Route: 065

REACTIONS (2)
  - Meningitis bacterial [Fatal]
  - Tumour invasion [Fatal]
